FAERS Safety Report 9298687 (Version 3)
Quarter: 2013Q4

REPORT INFORMATION
  Report Type: Spontaneous
  Country: US (occurrence: None)
  Receive Date: 20121227
  Receipt Date: 20131226
  Transmission Date: 20140711
  Serious: Yes (Other)
  Sender: FDA-Public Use
  Company Number: PHEH2012US022039

PATIENT
  Sex: Female

DRUGS (2)
  1. AFINITOR [Suspect]
     Indication: BREAST CANCER
     Route: 048
     Dates: end: 201210
  2. ZOMETA (ZOLEDRONIC ACID) [Concomitant]

REACTIONS (3)
  - Neoplasm [None]
  - Liver function test abnormal [None]
  - Drug ineffective [None]
